FAERS Safety Report 4343819-8 (Version None)
Quarter: 2004Q2

REPORT INFORMATION
  Report Type: 
  Country: None (occurrence: None)
  Receive Date: 20040419
  Receipt Date: 20040407
  Transmission Date: 20050107
  Serious: Yes (Hospitalization, Other)
  Sender: FDA-Public Use
  Company Number: 2004023899

PATIENT
  Sex: Female

DRUGS (3)
  1. ZOLOFT [Suspect]
     Indication: PANIC ATTACK
     Dosage: 100 MG (DAILY), ORAL
     Route: 048
     Dates: start: 20020101
  2. CLONAZEPAM [Concomitant]
  3. ALPRAZOLAM [Concomitant]

REACTIONS (6)
  - FEELING JITTERY [None]
  - INSOMNIA [None]
  - MEDICATION ERROR [None]
  - NIGHTMARE [None]
  - PANIC ATTACK [None]
  - TREATMENT NONCOMPLIANCE [None]
